FAERS Safety Report 9679077 (Version 6)
Quarter: 2014Q2

REPORT INFORMATION
  Report Type: Spontaneous
  Country: US (occurrence: US)
  Receive Date: 20131108
  Receipt Date: 20140411
  Transmission Date: 20141212
  Serious: Yes (Hospitalization, Other)
  Sender: FDA-Public Use
  Company Number: US-B.I. PHARMACEUTICALS,INC./RIDGEFIELD-2013-BI-36790YA

PATIENT
  Sex: Male

DRUGS (5)
  1. FLOMAX CAPSULES [Suspect]
     Indication: PRODUCT USED FOR UNKNOWN INDICATION
     Route: 065
  2. XTANDI [Suspect]
     Indication: PROSTATE CANCER
     Dosage: 160 MG
     Route: 048
     Dates: start: 20130920, end: 20140314
  3. XTANDI [Suspect]
     Dosage: 160 MG
     Route: 048
     Dates: start: 20131003
  4. MEGASTROL (MEGESTROL ACETATE) [Concomitant]
     Route: 065
  5. ANTIHYPERTENSIVES [Concomitant]
     Route: 065

REACTIONS (13)
  - Metastases to bone [Unknown]
  - Syncope [Not Recovered/Not Resolved]
  - Transurethral prostatectomy [Unknown]
  - Investigation [Unknown]
  - Back pain [Recovered/Resolved]
  - Musculoskeletal pain [Recovered/Resolved]
  - Dizziness [Recovered/Resolved]
  - Chills [Unknown]
  - Fatigue [Unknown]
  - Somnolence [Unknown]
  - Nausea [Unknown]
  - Decreased appetite [Unknown]
  - Drug ineffective [Unknown]
